FAERS Safety Report 9096937 (Version 1)
Quarter: 2013Q1

REPORT INFORMATION
  Report Type: Spontaneous
  Country: US (occurrence: None)
  Receive Date: 20130125
  Receipt Date: 20130125
  Transmission Date: 20140127
  Serious: Yes (Hospitalization)
  Sender: FDA-Public Use
  Company Number: E2B_00000553

PATIENT
  Age: 78 Year
  Sex: Male
  Weight: 74.39 kg

DRUGS (6)
  1. LEVETIRACETAM [Suspect]
     Indication: EPILEPSY
     Dosage: 1000 MG (500 MG, 2 IN 1 D), PER ORAL
     Dates: start: 201010
  2. SIMVASTATIN (TABLETS) (SIMVASTATIN) [Concomitant]
  3. OMEPRAZOLE (CAPSULE) [Concomitant]
  4. NICOTINIC ACID (NIACIN) (CAPSULE) [Concomitant]
  5. FISH OIL (CAPSULE) [Concomitant]
  6. ASPIRIN (TABLETS) [Concomitant]

REACTIONS (5)
  - Confusional state [None]
  - Vomiting [None]
  - Diarrhoea [None]
  - Pyrexia [None]
  - Aggression [None]
